FAERS Safety Report 8207754-7 (Version None)
Quarter: 2012Q1

REPORT INFORMATION
  Report Type: 
  Country: None (occurrence: None)
  Receive Date: 20120314
  Receipt Date: 20120305
  Transmission Date: 20120608
  Serious: Yes (Other)
  Sender: FDA-Public Use
  Company Number: CA-SANOFI-AVENTIS-2012SA004361

PATIENT
  Age: 3 Year
  Sex: Male

DRUGS (1)
  1. LOVENOX [Suspect]
     Route: 047
     Dates: start: 20120119, end: 20120119

REACTIONS (1)
  - ACCIDENTAL EXPOSURE [None]
